FAERS Safety Report 11087977 (Version 1)
Quarter: 2015Q2

REPORT INFORMATION
  Report Type: Spontaneous
  Country: US (occurrence: US)
  Receive Date: 20150504
  Receipt Date: 20150504
  Transmission Date: 20150821
  Serious: Yes (Death, Other)
  Sender: FDA-Public Use
  Company Number: US-TEVA-559354USA

PATIENT
  Age: 30 Year
  Sex: Female

DRUGS (2)
  1. PHENYTOIN. [Concomitant]
     Active Substance: PHENYTOIN
     Indication: SEIZURE
     Route: 065
  2. HYDROXYCHLOROQUINE [Suspect]
     Active Substance: HYDROXYCHLOROQUINE
     Indication: SEIZURE
     Route: 065

REACTIONS (5)
  - Septic shock [Fatal]
  - Multi-organ failure [Fatal]
  - Toxic epidermal necrolysis [Fatal]
  - Bacteraemia [Fatal]
  - Zygomycosis [Fatal]
